FAERS Safety Report 20462757 (Version 1)
Quarter: 2022Q1

REPORT INFORMATION
  Report Type: Spontaneous
  Country: US (occurrence: US)
  Receive Date: 20220211
  Receipt Date: 20220211
  Transmission Date: 20220423
  Serious: No
  Sender: FDA-Public Use
  Company Number: US-PERRIGO-21US001069

PATIENT
  Age: 73 Year
  Sex: Female
  Weight: 69.388 kg

DRUGS (1)
  1. KETOCONAZOLE [Suspect]
     Active Substance: KETOCONAZOLE
     Indication: Seborrhoeic dermatitis
     Dosage: APPROX. 1 TABLESPOON, SINGLE
     Route: 061
     Dates: start: 20210117, end: 20210117

REACTIONS (3)
  - Hair texture abnormal [Recovered/Resolved]
  - Hair texture abnormal [Recovered/Resolved]
  - Drug ineffective for unapproved indication [Not Recovered/Not Resolved]

NARRATIVE: CASE EVENT DATE: 20210117
